FAERS Safety Report 19745651 (Version 1)
Quarter: 2021Q3

REPORT INFORMATION
  Report Type: Spontaneous
  Country: US (occurrence: US)
  Receive Date: 20210825
  Receipt Date: 20210825
  Transmission Date: 20211014
  Serious: Yes (Other)
  Sender: FDA-Public Use
  Company Number: US-ROCHE-2797363

PATIENT

DRUGS (2)
  1. ACTIVASE [Suspect]
     Active Substance: ALTEPLASE
     Indication: ISCHAEMIC STROKE
     Dosage: ACTIVASE 100 MG VIAL KIT
     Route: 042
     Dates: start: 20210322
  2. ACTIVASE [Suspect]
     Active Substance: ALTEPLASE

REACTIONS (4)
  - Treatment delayed [Unknown]
  - Device issue [Unknown]
  - Off label use [Unknown]
  - No adverse event [Unknown]

NARRATIVE: CASE EVENT DATE: 20210322
